FAERS Safety Report 13950424 (Version 2)
Quarter: 2017Q4

REPORT INFORMATION
  Report Type: Spontaneous
  Country: IT (occurrence: IT)
  Receive Date: 20170908
  Receipt Date: 20171011
  Transmission Date: 20180320
  Serious: Yes (Other)
  Sender: FDA-Public Use
  Company Number: IT-TEVA-804855ACC

PATIENT
  Age: 47 Year
  Sex: Female

DRUGS (2)
  1. TARDYFER - PIERRE FABRE PHARMA S.R.L. [Suspect]
     Active Substance: FERROUS SULFATE
     Indication: ANAEMIA
     Dosage: 80 MILLIGRAM DAILY;
     Route: 048
     Dates: start: 20170810, end: 20170816
  2. NAEMIS - RATIOPHARM ITALIA S.R.L. [Suspect]
     Active Substance: ESTRADIOL\NOMEGESTROL ACETATE
     Indication: MENOPAUSAL SYMPTOMS
     Dosage: DAILY
     Route: 048

REACTIONS (6)
  - Abdominal rigidity [Recovered/Resolved]
  - Abdominal pain [Recovered/Resolved]
  - Oral herpes [Recovering/Resolving]
  - Gastrointestinal disorder [Recovered/Resolved]
  - Dysentery [Recovered/Resolved]
  - Nausea [Recovered/Resolved]

NARRATIVE: CASE EVENT DATE: 20170816
